FAERS Safety Report 7562889-7 (Version None)
Quarter: 2011Q2

REPORT INFORMATION
  Report Type: 
  Country: None (occurrence: None)
  Receive Date: 20110622
  Receipt Date: 20110610
  Transmission Date: 20111010
  Serious: Yes (Other)
  Sender: FDA-Public Use
  Company Number: JP-PFIZER INC-2011133719

PATIENT
  Age: 79 Year
  Sex: Female
  Weight: 47 kg

DRUGS (6)
  1. CAMPTOSAR [Suspect]
     Indication: COLORECTAL CANCER
     Dosage: 170 MG/BODY (127.8 MG/M2
     Route: 041
     Dates: start: 20101101, end: 20101101
  2. FLUOROURACIL [Concomitant]
     Indication: COLORECTAL CANCER
     Dosage: 460 MG/BODY (345.9 MG/M2)
     Route: 040
     Dates: start: 20101101, end: 20110124
  3. CAMPTOSAR [Suspect]
     Dosage: 40 MG/BODY (30.1 MG/M2)
     Route: 041
     Dates: start: 20110124, end: 20110124
  4. FLUOROURACIL [Concomitant]
     Dosage: 2750 MG/BODY/D1-2 (2067.7 MG/M2/D1-2)
     Route: 041
     Dates: start: 20101101, end: 20110124
  5. AVASTIN [Concomitant]
     Indication: COLORECTAL CANCER
     Dosage: 420 MG/BODY
     Route: 041
     Dates: start: 20101101, end: 20110124
  6. CALCIUM LEVOFOLINATE [Concomitant]
     Indication: COLORECTAL CANCER
     Dosage: 290 MG/BODY (218 MG/M2)
     Route: 041
     Dates: start: 20101101, end: 20110124

REACTIONS (5)
  - THROMBOCYTOPENIA [None]
  - DIARRHOEA [None]
  - CHOLECYSTITIS ACUTE [None]
  - LEUKOPENIA [None]
  - NEUTROPENIA [None]
